FAERS Safety Report 7199267-9 (Version None)
Quarter: 2010Q4

REPORT INFORMATION
  Report Type: 
  Country: None (occurrence: None)
  Receive Date: 20101223
  Receipt Date: 20101223
  Transmission Date: 20110411
  Serious: No
  Sender: FDA-Public Use
  Company Number: None

PATIENT
  Age: 71 Year
  Sex: Female
  Weight: 83.9154 kg

DRUGS (1)
  1. DARVOCET-N 100 [Suspect]
     Indication: ARTHRALGIA
     Dosage: 1 TAB Q 4-6HR PRN PO
     Route: 048

REACTIONS (3)
  - DIZZINESS [None]
  - HIP FRACTURE [None]
  - SYNCOPE [None]
